FAERS Safety Report 25883295 (Version 2)
Quarter: 2025Q4

REPORT INFORMATION
  Report Type: Report from Study
  Country: US (occurrence: US)
  Receive Date: 20251006
  Receipt Date: 20251017
  Transmission Date: 20260117
  Serious: Yes (Death, Disabling)
  Sender: ALEXION PHARMACEUTICALS
  Company Number: US-AstraZeneca-CH-00963871A

PATIENT
  Age: 77 Year
  Sex: Female
  Weight: 70.295 kg

DRUGS (23)
  1. BREZTRI [Suspect]
     Active Substance: BUDESONIDE\FORMOTEROL\GLYCOPYRROLATE
     Dosage: 2 PUFFS BID
  2. FARXIGA [Suspect]
     Active Substance: DAPAGLIFLOZIN PROPANEDIOL
     Dosage: 10 MILLIGRAM, QD
     Dates: start: 20231025
  3. FERROUS SULFATE [Concomitant]
     Active Substance: FERROUS SULFATE
  4. IPRATROPIUM BROMIDE [Concomitant]
     Active Substance: IPRATROPIUM BROMIDE
  5. ALBUTEROL SULFATE [Concomitant]
     Active Substance: ALBUTEROL SULFATE
  6. ATORVASTATIN CALCIUM [Concomitant]
     Active Substance: ATORVASTATIN CALCIUM
  7. ASPIRIN [Concomitant]
     Active Substance: ASPIRIN
  8. DIGOXIN [Concomitant]
     Active Substance: DIGOXIN
  9. LEVALBUTEROL [Concomitant]
     Active Substance: LEVALBUTEROL
  10. METOPROLOL SUCCINATE [Concomitant]
     Active Substance: METOPROLOL SUCCINATE
  11. RETACRIT [Concomitant]
     Active Substance: EPOETIN ALFA-EPBX
  12. HIGH DENSITY POLYETHYLENE [Concomitant]
     Active Substance: HIGH DENSITY POLYETHYLENE
  13. CALCIUM [Concomitant]
     Active Substance: CALCIUM
  14. VITAMIN D3 [Concomitant]
     Active Substance: CHOLECALCIFEROL
  15. LANTUS [Concomitant]
     Active Substance: INSULIN GLARGINE
  16. BUMETANIDE [Concomitant]
     Active Substance: BUMETANIDE
  17. MINERALS\VITAMINS [Concomitant]
     Active Substance: MINERALS\VITAMINS
  18. Methyl [Concomitant]
  19. HYDROCODONE [Concomitant]
     Active Substance: HYDROCODONE
  20. ACETAMINOPHEN [Concomitant]
     Active Substance: ACETAMINOPHEN
  21. LUTEIN [Concomitant]
     Active Substance: LUTEIN
  22. CARDIZEM [Concomitant]
     Active Substance: DILTIAZEM HYDROCHLORIDE
  23. LEVOTHYROXINE [Concomitant]
     Active Substance: LEVOTHYROXINE

REACTIONS (2)
  - End stage renal disease [Fatal]
  - Cardiac failure [Fatal]
